FAERS Safety Report 20702499 (Version 1)
Quarter: 2022Q2

REPORT INFORMATION
  Report Type: Spontaneous
  Country: US (occurrence: US)
  Receive Date: 20220412
  Receipt Date: 20220412
  Transmission Date: 20220720
  Serious: No
  Sender: FDA-Public Use
  Company Number: US-GALDERMA-US2022003863

PATIENT

DRUGS (3)
  1. PROACTIV MD ADAPALENE ACNE TREATMENT [Suspect]
     Active Substance: ADAPALENE
     Indication: Acne cystic
     Dosage: 1 DOSAGE FORM, QOD
     Route: 061
     Dates: start: 2021
  2. PROACTIV MD DAILY OIL CONTROL SPF 30 [Suspect]
     Active Substance: AVOBENZONE\OCTISALATE\OCTOCRYLENE
     Indication: Acne cystic
     Dosage: 1 DOSAGE FORM, QD
     Route: 061
     Dates: start: 2021
  3. COSMETICS [Concomitant]
     Active Substance: COSMETICS
     Indication: Acne cystic
     Dosage: 1 DOSAGE FORM, QD
     Route: 061
     Dates: start: 2021

REACTIONS (4)
  - Product use in unapproved indication [Recovered/Resolved]
  - Drug ineffective for unapproved indication [Recovered/Resolved]
  - Inappropriate schedule of product administration [Recovered/Resolved]
  - Underdose [Recovered/Resolved]

NARRATIVE: CASE EVENT DATE: 20210101
